FAERS Safety Report 16474464 (Version 1)
Quarter: 2019Q2

REPORT INFORMATION
  Report Type: Report from Study
  Country: KR (occurrence: KR)
  Receive Date: 20190625
  Receipt Date: 20190625
  Transmission Date: 20190711
  Serious: Yes (Other)
  Sender: FDA-Public Use
  Company Number: KR-PFIZER INC-2019261082

PATIENT
  Age: 8 Year
  Sex: Male

DRUGS (6)
  1. DEXMEDETOMIDINE HYDROCHLORIDE. [Suspect]
     Active Substance: DEXMEDETOMIDINE HYDROCHLORIDE
     Dosage: UNK (1 UG/KG/H, MAINTENANCE)
  2. SALBUTAMOL [Concomitant]
     Active Substance: ALBUTEROL
     Indication: PREMEDICATION
     Dosage: UNK (NEBULIZER)
  3. DEXMEDETOMIDINE HYDROCHLORIDE. [Suspect]
     Active Substance: DEXMEDETOMIDINE HYDROCHLORIDE
     Indication: SEDATIVE THERAPY
     Dosage: 2 UG/KG, UNK (LOADING DOSE; OVER 10 MINUTES)
  4. GLYCOPYRROLATE [GLYCOPYRRONIUM BROMIDE] [Concomitant]
     Indication: PROPHYLAXIS
     Dosage: 4 UG/KG, UNK (BEFORE RECEIVING THEIR INITIAL LOADING DOSES OF SEDATIVES)
     Route: 042
  5. OXYGEN. [Concomitant]
     Active Substance: OXYGEN
     Indication: SUPPLEMENTATION THERAPY
     Dosage: UNK (AT A RATE OF 4 L/MIN THROUGH A FACIAL MASK WITH A FERROMAGNETIC PIECE REMOVED)
  6. GLYCOPYRROLATE [GLYCOPYRRONIUM BROMIDE] [Concomitant]
     Indication: PREMEDICATION

REACTIONS (1)
  - Upper airway obstruction [Recovered/Resolved]
